FAERS Safety Report 4292983-8 (Version None)
Quarter: 2004Q1

REPORT INFORMATION
  Report Type: 
  Country: None (occurrence: None)
  Receive Date: 20040212
  Receipt Date: 20030806
  Transmission Date: 20041129
  Serious: Yes (Other)
  Sender: FDA-Public Use
  Company Number: US-GLAXOSMITHKLINE-A0419943A

PATIENT
  Age: 28 Year
  Sex: Female

DRUGS (1)
  1. PAXIL [Suspect]
     Indication: ANXIETY
     Dosage: 20MG PER DAY
     Route: 048
     Dates: start: 20020101, end: 20030724

REACTIONS (6)
  - DIZZINESS [None]
  - DRUG WITHDRAWAL SYNDROME [None]
  - HOT FLUSH [None]
  - HYPERHIDROSIS [None]
  - PANIC REACTION [None]
  - VOMITING [None]
